FAERS Safety Report 25823199 (Version 1)
Quarter: 2025Q3

REPORT INFORMATION
  Report Type: Spontaneous
  Country: EU (occurrence: EU)
  Receive Date: 20250919
  Receipt Date: 20250919
  Transmission Date: 20251020
  Serious: Yes (Other)
  Sender: AMGEN
  Company Number: EU-AMGEN-PRTSP2025184149

PATIENT
  Age: 46 Year
  Sex: Female

DRUGS (2)
  1. BEVACIZUMAB [Suspect]
     Active Substance: BEVACIZUMAB
     Indication: Gliosarcoma
     Route: 065
  2. LOMUSTINE [Concomitant]
     Active Substance: LOMUSTINE
     Indication: Gliosarcoma

REACTIONS (5)
  - Renal-limited thrombotic microangiopathy [Recovering/Resolving]
  - Neoplasm progression [Unknown]
  - Intestinal fibrosis [Unknown]
  - Arteriosclerosis [Unknown]
  - Off label use [Unknown]
